FAERS Safety Report 8429474-6 (Version None)
Quarter: 2012Q2

REPORT INFORMATION
  Report Type: 
  Country: None (occurrence: None)
  Receive Date: 20120612
  Receipt Date: 20120514
  Transmission Date: 20120825
  Serious: No
  Sender: FDA-Public Use
  Company Number: US-JNJFOC-20120514542

PATIENT
  Age: 28 Year
  Sex: Female

DRUGS (3)
  1. INVEGA SUSTENNA [Suspect]
     Route: 030
  2. INVEGA SUSTENNA [Suspect]
     Indication: PRODUCT USED FOR UNKNOWN INDICATION
     Dosage: 2 WEEKS LATER
     Route: 030
  3. INVEGA SUSTENNA [Suspect]
     Dosage: 4 WEEKS LATER
     Route: 030

REACTIONS (2)
  - GALACTORRHOEA [None]
  - BLOOD PROLACTIN INCREASED [None]
